FAERS Safety Report 7704995-X (Version None)
Quarter: 2011Q3

REPORT INFORMATION
  Report Type: 
  Country: None (occurrence: None)
  Receive Date: 20110823
  Receipt Date: 20110808
  Transmission Date: 20111222
  Serious: Yes (Life-Threatening, Hospitalization)
  Sender: FDA-Public Use
  Company Number: TW-WATSON-2011-13289

PATIENT
  Age: 28 Year
  Sex: Female

DRUGS (1)
  1. PROPRANOLOL [Suspect]
     Indication: VENTRICULAR EXTRASYSTOLES
     Dosage: 10 MG, TID
     Route: 048

REACTIONS (5)
  - DYSPNOEA [None]
  - HYPOTENSION [None]
  - DRUG INEFFECTIVE [None]
  - CHEST DISCOMFORT [None]
  - VENTRICULAR TACHYCARDIA [None]
